FAERS Safety Report 6974671-X (Version None)
Quarter: 2010Q3

REPORT INFORMATION
  Report Type: 
  Country: None (occurrence: None)
  Receive Date: 20100909
  Receipt Date: 20081204
  Transmission Date: 20110219
  Serious: No
  Sender: FDA-Public Use
  Company Number: US-WYE-H07130408

PATIENT
  Sex: Male

DRUGS (1)
  1. PRISTIQ [Suspect]
     Indication: DEPRESSION
     Route: 048
     Dates: start: 20081202

REACTIONS (8)
  - AGGRESSION [None]
  - CONFUSIONAL STATE [None]
  - DIARRHOEA [None]
  - GASTROINTESTINAL PAIN [None]
  - HEART RATE INCREASED [None]
  - LOGORRHOEA [None]
  - NAUSEA [None]
  - RESTLESSNESS [None]
